FAERS Safety Report 5504755-4 (Version None)
Quarter: 2007Q4

REPORT INFORMATION
  Report Type: 
  Country: None (occurrence: None)
  Receive Date: 20071102
  Receipt Date: 20071029
  Transmission Date: 20080405
  Serious: Yes (Life-Threatening, Hospitalization)
  Sender: FDA-Public Use
  Company Number: RU-ASTRAZENECA-2007SE05669

PATIENT
  Age: 39 Year
  Sex: Female
  Weight: 70 kg

DRUGS (4)
  1. CRESTOR [Suspect]
     Indication: DYSLIPIDAEMIA
     Route: 048
     Dates: start: 20061001
  2. BISOPROLOL FUMARATE [Concomitant]
     Indication: HYPERTENSION
     Route: 048
     Dates: start: 20070401
  3. CURANTYL [Concomitant]
     Indication: DYSLIPIDAEMIA
  4. MILDRONATE [Concomitant]

REACTIONS (3)
  - ASTHENIA [None]
  - DYSPNOEA [None]
  - PULMONARY OEDEMA [None]
